FAERS Safety Report 6374408-1 (Version None)
Quarter: 2009Q3

REPORT INFORMATION
  Report Type: 
  Country: None (occurrence: None)
  Receive Date: 20090921
  Receipt Date: 20090921
  Transmission Date: 20100115
  Serious: No
  Sender: FDA-Public Use
  Company Number: None

PATIENT
  Age: 75 Year
  Sex: Female
  Weight: 81.6475 kg

DRUGS (1)
  1. ZETIA [Suspect]
     Indication: BLOOD CHOLESTEROL INCREASED
     Dosage: ONE TABLET ONE A DAY
     Dates: start: 20090804, end: 20090814

REACTIONS (1)
  - BACK PAIN [None]
